FAERS Safety Report 21938457 (Version 1)
Quarter: 2023Q1

REPORT INFORMATION
  Report Type: Spontaneous
  Country: US (occurrence: US)
  Receive Date: 20230201
  Receipt Date: 20230201
  Transmission Date: 20230417
  Serious: No
  Sender: FDA-Public Use
  Company Number: US-RVL_Pharmaceuticals-USA-POI1255202200369

PATIENT
  Age: 23 Year
  Sex: Female

DRUGS (6)
  1. UPNEEQ [Suspect]
     Active Substance: OXYMETAZOLINE HYDROCHLORIDE
     Indication: Product use in unapproved indication
     Dosage: OU
     Route: 047
     Dates: start: 20221102, end: 20221102
  2. DOXYCYCLINE [Concomitant]
     Active Substance: DOXYCYCLINE
     Indication: Acne
  3. RHOFADE [Concomitant]
     Active Substance: OXYMETAZOLINE HYDROCHLORIDE
     Indication: Erythema
  4. TRETINOIN [Concomitant]
     Active Substance: TRETINOIN
     Indication: Erythema
     Route: 061
  5. ACZONE [Concomitant]
     Active Substance: DAPSONE
     Indication: Acne
     Route: 061
  6. TRIAMCINOLONE [Concomitant]
     Active Substance: TRIAMCINOLONE
     Indication: Erythema
     Route: 061

REACTIONS (5)
  - Dizziness [Recovered/Resolved]
  - Nausea [Recovered/Resolved]
  - Pain of skin [Recovered/Resolved]
  - Pallor [Recovered/Resolved]
  - Off label use [Recovered/Resolved]

NARRATIVE: CASE EVENT DATE: 20221102
